FAERS Safety Report 4589259-8 (Version None)
Quarter: 2005Q1

REPORT INFORMATION
  Report Type: 
  Country: None (occurrence: None)
  Receive Date: 20050216
  Receipt Date: 20050211
  Transmission Date: 20050727
  Serious: Yes (Hospitalization)
  Sender: FDA-Public Use
  Company Number: 212399

PATIENT
  Age: 69 Year
  Sex: Male

DRUGS (3)
  1. AVASTIN [Suspect]
     Indication: METASTATIC RENAL CELL CARCINOMA
     Dosage: 936 MG, INTRAVENOUS
     Route: 042
     Dates: start: 20041101
  2. ERLOTINIB (ERLOTINIB) TABLET, 100MG [Suspect]
     Indication: METASTATIC RENAL CELL CARCINOMA
     Dosage: 100 MG, QD, ORAL
     Route: 048
     Dates: start: 20041104
  3. GLEEVEC [Suspect]
     Indication: METASTATIC RENAL CELL CARCINOMA
     Dosage: 400 MG, ORAL
     Route: 048
     Dates: start: 20041104

REACTIONS (5)
  - ESCHERICHIA INFECTION [None]
  - GENERAL NUTRITION DISORDER [None]
  - HYPOTENSION [None]
  - SEPSIS SYNDROME [None]
  - SYNCOPE [None]
